FAERS Safety Report 13080778 (Version 2)
Quarter: 2017Q1

REPORT INFORMATION
  Report Type: Spontaneous
  Country: IT (occurrence: IT)
  Receive Date: 20170103
  Receipt Date: 20170112
  Transmission Date: 20170428
  Serious: Yes (Other)
  Sender: FDA-Public Use
  Company Number: IT-PFIZER INC-2016603613

PATIENT
  Age: 32 Year

DRUGS (1)
  1. LOETTE [Suspect]
     Active Substance: ETHINYL ESTRADIOL\LEVONORGESTREL
     Indication: HYPERPROLACTINAEMIA
     Dosage: 0.1 MG, DAILY
     Route: 048
     Dates: start: 20160611, end: 20161130

REACTIONS (3)
  - Product use issue [Unknown]
  - Visual acuity reduced [Not Recovered/Not Resolved]
  - Chloasma [Not Recovered/Not Resolved]

NARRATIVE: CASE EVENT DATE: 20160611
